FAERS Safety Report 4906638-7 (Version None)
Quarter: 2006Q1

REPORT INFORMATION
  Report Type: 
  Country: None (occurrence: None)
  Receive Date: 20060209
  Receipt Date: 20060130
  Transmission Date: 20060701
  Serious: Yes (Death)
  Sender: FDA-Public Use
  Company Number: BE-GLAXOSMITHKLINE-B0409566A

PATIENT
  Age: 38 Year
  Sex: Female

DRUGS (7)
  1. RANITIDINE HCL [Suspect]
     Indication: PROPHYLAXIS
     Dosage: 50MG CUMULATIVE DOSE
     Route: 065
  2. CEFAZOLIN [Suspect]
     Indication: PROPHYLAXIS
     Dosage: 4G CUMULATIVE DOSE
     Route: 065
  3. METHYLPREDNISOLONE [Concomitant]
     Indication: PROPHYLAXIS
     Dosage: 1G CUMULATIVE DOSE
     Route: 042
  4. KETOROLAC [Concomitant]
     Route: 065
  5. PARACETAMOL [Concomitant]
     Route: 065
  6. DEXAMETHASONE [Concomitant]
     Route: 065
  7. GENERAL ANAESTHESIA [Concomitant]
     Route: 065

REACTIONS (13)
  - CARDIOGENIC SHOCK [None]
  - CHEST PAIN [None]
  - CYANOSIS [None]
  - DYSPNOEA [None]
  - EOSINOPHILIC MYOCARDITIS [None]
  - JUGULAR VEIN DISTENSION [None]
  - NORMOCHROMIC NORMOCYTIC ANAEMIA [None]
  - PALPITATIONS [None]
  - RALES [None]
  - RESPIRATORY ARREST [None]
  - SINUS TACHYCARDIA [None]
  - SUDDEN DEATH [None]
  - VENTRICULAR HYPOKINESIA [None]
